FAERS Safety Report 6162602-4 (Version None)
Quarter: 2009Q2

REPORT INFORMATION
  Report Type: 
  Country: None (occurrence: None)
  Receive Date: 20090421
  Receipt Date: 20080630
  Transmission Date: 20091009
  Serious: No
  Sender: FDA-Public Use
  Company Number: US-ASTRAZENECA-2007UW24757

PATIENT
  Age: 50 Year
  Sex: Female
  Weight: 89.8 kg

DRUGS (9)
  1. SYMBICORT [Suspect]
     Indication: ASTHMA
     Dosage: 160/4.5 2 PUFFS BID
     Route: 055
     Dates: start: 20070401
  2. ALBUTEROL [Concomitant]
  3. SINGULAIR [Concomitant]
  4. LORATADINE [Concomitant]
  5. GLEEVEC [Concomitant]
  6. CARDIZEM LA [Concomitant]
  7. POTASSIUM CHLORIDE [Concomitant]
  8. PLAVIX [Concomitant]
  9. BACLOFEN [Concomitant]

REACTIONS (3)
  - CHEST DISCOMFORT [None]
  - DRUG INEFFECTIVE [None]
  - DYSPNOEA [None]
